FAERS Safety Report 13872478 (Version 2)
Quarter: 2017Q3

REPORT INFORMATION
  Report Type: Spontaneous
  Country: US (occurrence: US)
  Receive Date: 20170816
  Receipt Date: 20170825
  Transmission Date: 20171127
  Serious: No
  Sender: FDA-Public Use
  Company Number: US-PFIZER INC-2017349315

PATIENT
  Sex: Female

DRUGS (3)
  1. ENBREL [Suspect]
     Active Substance: ETANERCEPT
     Dosage: UNK
  2. MTX [Suspect]
     Active Substance: METHOTREXATE SODIUM
     Dosage: 5 DF, WEEKLY
  3. MEDROL [Suspect]
     Active Substance: METHYLPREDNISOLONE
     Dosage: 4 MG, DAILY

REACTIONS (16)
  - Musculoskeletal stiffness [Unknown]
  - Red blood cell sedimentation rate increased [Unknown]
  - Arthralgia [Unknown]
  - Muscular weakness [Unknown]
  - Weight increased [Unknown]
  - Muscle spasms [Unknown]
  - Albumin globulin ratio decreased [Unknown]
  - C-reactive protein increased [Unknown]
  - Myalgia [Unknown]
  - Dry mouth [Unknown]
  - Peripheral swelling [Unknown]
  - Joint swelling [Unknown]
  - Loss of personal independence in daily activities [Unknown]
  - Muscle tightness [Unknown]
  - Blood albumin decreased [Unknown]
  - Human epidermal growth factor receptor decreased [Unknown]
